FAERS Safety Report 9376268 (Version 1)
Quarter: 2013Q3

REPORT INFORMATION
  Report Type: Spontaneous
  Country: BR (occurrence: BR)
  Receive Date: 20130701
  Receipt Date: 20130701
  Transmission Date: 20140515
  Serious: Yes (Other)
  Sender: FDA-Public Use
  Company Number: BR-AMGEN-BRASP2013045597

PATIENT
  Age: 49 Year
  Sex: Female
  Weight: 70 kg

DRUGS (7)
  1. ENBREL [Suspect]
     Indication: RHEUMATOID ARTHRITIS
     Dosage: 50 MG, 1X/WEEK
     Route: 058
     Dates: start: 2011, end: 201304
  2. OMEPRAZOL                          /00661201/ [Concomitant]
     Dosage: 20 MG, 1X/DAY
  3. ACECLOFENAC [Concomitant]
     Dosage: 100 MG, 1X/DAY
  4. FAMOTIDINE [Concomitant]
     Dosage: 20 MG, 1X/DAY (AT NIGHT)
  5. TRIAMCINOLONE [Concomitant]
     Dosage: 4 MG, UNK
  6. BROMAZEPAM [Concomitant]
     Dosage: 6 MG, 1X/DAY
  7. GLUCOSAMINE [Concomitant]
     Dosage: 500 MG, 2X/DAY

REACTIONS (1)
  - Breast mass [Unknown]
